FAERS Safety Report 7552018-8 (Version None)
Quarter: 2011Q2

REPORT INFORMATION
  Report Type: 
  Country: None (occurrence: None)
  Receive Date: 20110616
  Receipt Date: 20110601
  Transmission Date: 20111010
  Serious: Yes (Life-Threatening)
  Sender: FDA-Public Use
  Company Number: NL-NAPPMUNDI-GBR-2011-0008358

PATIENT
  Sex: Male
  Weight: 77 kg

DRUGS (8)
  1. PANTOPRAZOL                        /01263202/ [Concomitant]
     Dosage: 200 MG, DAILY
  2. DIPYRIDAMOL [Concomitant]
     Dosage: 200 MG, DAILY
  3. BUPRENORPHINE [Suspect]
     Indication: MUSCULOSKELETAL PAIN
     Dosage: 5 MCG, Q1H
     Route: 062
     Dates: start: 20110315, end: 20110330
  4. CARBASALAATCALCIUM [Concomitant]
     Dosage: 100 MG, DAILY
  5. EZETIMIBE [Concomitant]
     Dosage: 20 MG, DAILY
  6. ALPRAZOLAM [Concomitant]
     Dosage: 0.5 MG, TID PRN
     Dates: start: 20110305
  7. ENALAPRIL MALEATE [Concomitant]
     Dosage: 5 MG, DAILY
  8. MACROGOL 4000 [Concomitant]
     Dosage: 4 G, 1 TO 2 AS NECESSARY

REACTIONS (5)
  - FLUSHING [None]
  - SLEEP DISORDER [None]
  - BALANCE DISORDER [None]
  - MOOD ALTERED [None]
  - AGITATION [None]
